FAERS Safety Report 8450331-3 (Version None)
Quarter: 2012Q2

REPORT INFORMATION
  Report Type: 
  Country: None (occurrence: None)
  Receive Date: 20120614
  Receipt Date: 20120614
  Transmission Date: 20120825
  Serious: Yes (Other)
  Sender: FDA-Public Use
  Company Number: None

PATIENT
  Age: 32 Year
  Sex: Male
  Weight: 104.3273 kg

DRUGS (1)
  1. STELARA [Suspect]
     Dosage: 90 MG, Q12 WEEKS, SQ

REACTIONS (1)
  - SPLENIC INFECTION [None]
